FAERS Safety Report 6612530-2 (Version None)
Quarter: 2010Q1

REPORT INFORMATION
  Report Type: 
  Country: None (occurrence: None)
  Receive Date: 20100303
  Receipt Date: 20100219
  Transmission Date: 20100710
  Serious: Yes (Life-Threatening, Hospitalization, Other)
  Sender: FDA-Public Use
  Company Number: JP-PFIZER INC-2010019969

PATIENT
  Age: 62 Year
  Sex: Male
  Weight: 88 kg

DRUGS (9)
  1. VIAGRA [Suspect]
     Indication: ERECTILE DYSFUNCTION
     Dosage: 25 MG, 1X/DAY
     Route: 048
     Dates: start: 20100108, end: 20100110
  2. VALSARTAN [Concomitant]
     Route: 048
     Dates: start: 20090209
  3. ARTIST [Concomitant]
     Route: 048
     Dates: start: 20090209
  4. ADALAT CC [Concomitant]
     Route: 048
     Dates: start: 20090209
  5. LASIX [Concomitant]
     Route: 048
     Dates: start: 20090209
  6. EPADEL [Concomitant]
     Route: 048
     Dates: start: 20090209
  7. RENIVACE [Concomitant]
     Route: 048
     Dates: start: 20090209
  8. CALCIUM CARBONATE [Concomitant]
     Route: 048
     Dates: start: 20090209
  9. NOVORAPID [Concomitant]
     Route: 058
     Dates: start: 20090101

REACTIONS (5)
  - ALTERED STATE OF CONSCIOUSNESS [None]
  - CARDIAC FAILURE [None]
  - HYPOCALCAEMIA [None]
  - LOSS OF CONSCIOUSNESS [None]
  - TONIC CONVULSION [None]
